FAERS Safety Report 6846850-3 (Version None)
Quarter: 2010Q3

REPORT INFORMATION
  Report Type: 
  Country: None (occurrence: None)
  Receive Date: 20100712
  Receipt Date: 20100630
  Transmission Date: 20110219
  Serious: Yes (Hospitalization)
  Sender: FDA-Public Use
  Company Number: 014787

PATIENT
  Age: 37 Year
  Sex: Female

DRUGS (6)
  1. KEPPRA [Suspect]
     Indication: LENNOX-GASTAUT SYNDROME
     Dosage: (750 MG TID ORAL), (1.5 G TID ORAL)
     Route: 048
     Dates: end: 20100329
  2. KEPPRA [Suspect]
     Indication: LENNOX-GASTAUT SYNDROME
     Dosage: (750 MG TID ORAL), (1.5 G TID ORAL)
     Route: 048
     Dates: start: 20100329, end: 20100331
  3. DEPAKINE CHRONOSPHERE [Concomitant]
  4. RUFINAMIDE [Concomitant]
  5. LAMICTAL [Concomitant]
  6. NOIAFREN [Concomitant]

REACTIONS (2)
  - COAGULOPATHY [None]
  - HEPATITIS [None]
